FAERS Safety Report 22846650 (Version 2)
Quarter: 2024Q3

REPORT INFORMATION
  Report Type: Report from Study
  Country: CA (occurrence: CA)
  Receive Date: 20230822
  Receipt Date: 20240702
  Transmission Date: 20241016
  Serious: Yes (Hospitalization)
  Sender: CELLTRION
  Company Number: CA-CELLTRION INC.-2023CA016341

PATIENT

DRUGS (19)
  1. RITUXIMAB [Suspect]
     Active Substance: RITUXIMAB
     Indication: Rheumatoid arthritis
     Dosage: 1000 MILLIGRAM, 1 EVERY 15 DAYS
     Route: 041
  2. RITUXIMAB [Suspect]
     Active Substance: RITUXIMAB
     Dosage: 1000 MILLIGRAM, 1 EVERY 15 DAYS
     Route: 041
  3. ASPIRIN [Concomitant]
     Active Substance: ASPIRIN
     Dosage: 81 MILLIGRAM
     Route: 065
  4. ALLOPURINOL [Concomitant]
     Active Substance: ALLOPURINOL
     Dosage: UNK
  5. FLUTICASONE FUROATE [Concomitant]
     Active Substance: FLUTICASONE FUROATE
  6. BENADRYL [Concomitant]
     Active Substance: DIPHENHYDRAMINE HYDROCHLORIDE
     Indication: Premedication
     Dosage: 50 MILLIGRAM
     Route: 048
  7. BILASTINE [Concomitant]
     Active Substance: BILASTINE
     Route: 048
  8. CANDESARTAN [Concomitant]
     Active Substance: CANDESARTAN
     Route: 065
  9. DEXILANT [Concomitant]
     Active Substance: DEXLANSOPRAZOLE
  10. EZETIMIBE [Concomitant]
     Active Substance: EZETIMIBE
     Indication: Blood cholesterol increased
     Route: 065
  11. GABAPENTIN [Concomitant]
     Active Substance: GABAPENTIN
     Indication: Pain
  12. HYDROXYCHLOROQUINE SULFATE [Concomitant]
     Active Substance: HYDROXYCHLOROQUINE SULFATE
  13. KRILL OIL [Concomitant]
     Active Substance: DIETARY SUPPLEMENT\KRILL OIL
  14. OMALIZUMAB [Concomitant]
     Active Substance: OMALIZUMAB
     Dosage: UNK, 1 EVERY 4 WEEKS
     Route: 065
  15. DOCONEXENT\ICOSAPENT [Concomitant]
     Active Substance: DOCONEXENT\ICOSAPENT
  16. SYNTHROID [Concomitant]
     Active Substance: LEVOTHYROXINE SODIUM
     Dosage: 0.125 MILLIGRAM
     Route: 065
  17. TIAZAC [Concomitant]
     Active Substance: DILTIAZEM HYDROCHLORIDE
     Route: 065
  18. TYLENOL [Concomitant]
     Active Substance: ACETAMINOPHEN
     Indication: Premedication
     Dosage: 650.0 MILLIGRAM
     Route: 048
  19. METHYLPREDNISOLONE SODIUM SUCCINATE [Concomitant]
     Active Substance: METHYLPREDNISOLONE SODIUM SUCCINATE
     Indication: Premedication
     Dosage: 100 MG
     Route: 042

REACTIONS (11)
  - Muscle spasms [Unknown]
  - Musculoskeletal stiffness [Unknown]
  - Pain in extremity [Unknown]
  - Stress [Unknown]
  - Swelling [Unknown]
  - Thyroid function test abnormal [Unknown]
  - Weight decreased [Unknown]
  - Arthralgia [Unknown]
  - Blood pressure decreased [Unknown]
  - Hypoaesthesia [Unknown]
  - Intentional product use issue [Unknown]
